FAERS Safety Report 8530284-X (Version None)
Quarter: 2012Q3

REPORT INFORMATION
  Report Type: 
  Country: None (occurrence: None)
  Receive Date: 20120723
  Receipt Date: 20120713
  Transmission Date: 20120928
  Serious: Yes (Hospitalization)
  Sender: FDA-Public Use
  Company Number: ES-ABBOTT-12P-144-0956617-04

PATIENT
  Age: 34 Year
  Sex: Male

DRUGS (5)
  1. HUMIRA [Suspect]
     Dosage: WEEK 2
     Route: 058
  2. INFLIXIMAB [Concomitant]
     Indication: ANORECTAL DISORDER
     Dosage: AT BEGINNING 15 DAYS AND LATER EVERY 8 WEEKS
     Dates: start: 20100511
  3. HUMIRA [Suspect]
     Indication: CROHN'S DISEASE
     Route: 058
     Dates: start: 20071215, end: 20071215
  4. HUMIRA [Suspect]
     Route: 058
     Dates: end: 20100401
  5. INFLIXIMAB [Concomitant]
     Indication: FISTULA DISCHARGE
     Dates: start: 20110906

REACTIONS (1)
  - FISTULA DISCHARGE [None]
